FAERS Safety Report 4455652-7 (Version None)
Quarter: 2004Q3

REPORT INFORMATION
  Report Type: 
  Country: None (occurrence: None)
  Receive Date: 20040917
  Receipt Date: 20040908
  Transmission Date: 20050211
  Serious: No
  Sender: FDA-Public Use
  Company Number: 2004UW18973

PATIENT
  Age: 84 Year
  Sex: Female

DRUGS (10)
  1. SEROQUEL [Suspect]
     Indication: AGITATION
     Dosage: 25 MG DAILY PO
     Route: 048
     Dates: start: 20040531
  2. SEROQUEL [Suspect]
     Indication: HOSTILITY
     Dosage: 25 MG DAILY PO
     Route: 048
     Dates: start: 20040531
  3. SEROQUEL [Suspect]
     Indication: AGITATION
     Dosage: 100 MG DAILY
  4. SEROQUEL [Suspect]
     Indication: HOSTILITY
     Dosage: 100 MG DAILY
  5. SEROQUEL [Suspect]
     Indication: AGITATION
     Dosage: 25 MG DAILY
  6. SEROQUEL [Suspect]
     Indication: HOSTILITY
     Dosage: 25 MG DAILY
  7. SEROQUEL [Suspect]
     Indication: HOSTILITY
     Dosage: 100 MG DAILY
  8. IMMOVANE [Concomitant]
  9. ACETAMINOPHEN [Concomitant]
  10. DILANTIN [Concomitant]

REACTIONS (4)
  - AGITATION [None]
  - COMMUNICATION DISORDER [None]
  - FALL [None]
  - FRACTURE [None]
